FAERS Safety Report 4308399-1 (Version None)
Quarter: 2004Q1

REPORT INFORMATION
  Report Type: 
  Country: None (occurrence: None)
  Receive Date: 20040301
  Receipt Date: 20040217
  Transmission Date: 20041129
  Serious: Yes (Hospitalization, Other)
  Sender: FDA-Public Use
  Company Number: US-GLAXOSMITHKLINE-B0324500A

PATIENT
  Age: 68 Year
  Sex: Male

DRUGS (10)
  1. VALACYCLOVIR HCL [Suspect]
     Dosage: 1000MG THREE TIMES PER DAY
  2. EPOGEN [Concomitant]
  3. GLIPIZIDE [Concomitant]
  4. NEPHRO-VITE [Concomitant]
  5. SILDENAFIL [Concomitant]
  6. AMLODIPINE [Concomitant]
  7. CALCIUM ACETATE [Concomitant]
  8. LEVOTHYROXINE SODIUM [Concomitant]
  9. METOPROLOL [Concomitant]
  10. PARICALCITOL [Concomitant]

REACTIONS (8)
  - AGITATION [None]
  - CONFUSIONAL STATE [None]
  - CONVULSION [None]
  - LACERATION [None]
  - MENTAL STATUS CHANGES [None]
  - MUSCLE SPASMS [None]
  - THINKING ABNORMAL [None]
  - TREMOR [None]
